FAERS Safety Report 10438660 (Version 1)
Quarter: 2014Q3

REPORT INFORMATION
  Report Type: Spontaneous
  Country: US (occurrence: US)
  Receive Date: 20140908
  Receipt Date: 20140908
  Transmission Date: 20150326
  Serious: No
  Sender: FDA-Public Use
  Company Number: US-BRISTOL-MYERS SQUIBB COMPANY-19160431

PATIENT
  Age: 18 Year
  Sex: Female
  Weight: 100.68 kg

DRUGS (2)
  1. MELATONIN [Concomitant]
     Active Substance: MELATONIN
  2. ABILIFY [Suspect]
     Active Substance: ARIPIPRAZOLE
     Dosage: STARTED AT 10 GM FOR 5 YRS INC TO 15MG

REACTIONS (1)
  - Weight increased [Unknown]
